FAERS Safety Report 13604408 (Version 1)
Quarter: 2017Q2

REPORT INFORMATION
  Report Type: Spontaneous
  Country: US (occurrence: US)
  Receive Date: 20170602
  Receipt Date: 20170602
  Transmission Date: 20170830
  Serious: No
  Sender: FDA-Public Use
  Company Number: US-NOVEN PHARMACEUTICALS, INC.-US2016001443

PATIENT

DRUGS (1)
  1. DAYTRANA [Suspect]
     Active Substance: METHYLPHENIDATE
     Indication: PRODUCT USED FOR UNKNOWN INDICATION
     Dosage: 30 MG (PRESCRIBED TO USE 20MG PATCH IN THE MORNING AND 10MG PATCH AT NIGHT) , UNK
     Route: 062

REACTIONS (2)
  - No adverse event [Unknown]
  - Off label use [Unknown]
